FAERS Safety Report 8178255-X (Version None)
Quarter: 2012Q1

REPORT INFORMATION
  Report Type: 
  Country: None (occurrence: None)
  Receive Date: 20120301
  Receipt Date: 20120224
  Transmission Date: 20120608
  Serious: Yes (Death, Hospitalization)
  Sender: FDA-Public Use
  Company Number: US-CELGENEUS-163-20785-12013286

PATIENT
  Sex: Female

DRUGS (7)
  1. THALOMID [Suspect]
     Dosage: 150 MILLIGRAM
     Route: 048
     Dates: start: 20120101
  2. ADRIAMYCIN PFS [Concomitant]
     Indication: MULTIPLE MYELOMA
     Route: 041
     Dates: start: 20111001, end: 20120101
  3. DEXAMETHASONE [Concomitant]
     Indication: MULTIPLE MYELOMA
     Route: 041
     Dates: start: 20111001, end: 20111001
  4. THALOMID [Suspect]
     Indication: MULTIPLE MYELOMA
     Dosage: 150 MILLIGRAM
     Route: 048
     Dates: start: 20111001, end: 20120101
  5. VELCADE [Concomitant]
     Indication: MULTIPLE MYELOMA
     Route: 041
     Dates: start: 20110801, end: 20111001
  6. THALOMID [Suspect]
     Dosage: 100 MILLIGRAM
     Route: 048
     Dates: start: 20111201
  7. VINCRISTINE [Concomitant]
     Indication: MULTIPLE MYELOMA
     Route: 041
     Dates: start: 20111001, end: 20120101

REACTIONS (2)
  - MULTIPLE MYELOMA [None]
  - RESPIRATORY FAILURE [None]
